FAERS Safety Report 15204015 (Version 1)
Quarter: 2018Q3

REPORT INFORMATION
  Report Type: Spontaneous
  Country: PT (occurrence: PT)
  Receive Date: 20180726
  Receipt Date: 20180726
  Transmission Date: 20181010
  Serious: Yes (Life-Threatening)
  Sender: FDA-Public Use
  Company Number: PT-MYLANLABS-2018M1053981

PATIENT
  Age: 65 Year
  Sex: Male

DRUGS (7)
  1. FUROSEMIDE. [Concomitant]
     Active Substance: FUROSEMIDE
     Indication: HYPERTENSION
     Route: 048
  2. SOTALOL. [Suspect]
     Active Substance: SOTALOL
     Indication: HYPERTENSION
     Dosage: 80 MG, BID
     Route: 048
  3. VARFINE [Concomitant]
     Active Substance: WARFARIN SODIUM
     Indication: ATRIAL FIBRILLATION
     Route: 048
  4. AMIODARONA                         /00133101/ [Interacting]
     Active Substance: AMIODARONE
     Indication: ATRIAL FIBRILLATION
     Route: 042
     Dates: start: 20180117, end: 20180117
  5. NOLOTIL                            /00473101/ [Concomitant]
     Active Substance: METAMIZOLE\PROPOXYPHENE
     Indication: PAIN
     Route: 042
     Dates: start: 20180117, end: 20180118
  6. OMEPRAZOLE. [Concomitant]
     Active Substance: OMEPRAZOLE
     Indication: PRODUCT USED FOR UNKNOWN INDICATION
     Route: 048
  7. METIBASOL [Concomitant]
     Active Substance: METHIMAZOLE
     Indication: HYPERTHYROIDISM
     Route: 048

REACTIONS (8)
  - Hypoxia [Recovered/Resolved]
  - Eye pruritus [Recovered/Resolved]
  - Tachycardia [Recovered/Resolved]
  - Cyanosis [Recovered/Resolved]
  - Laryngeal oedema [Recovered/Resolved]
  - Hypotension [Recovered/Resolved]
  - Hyperhidrosis [Recovered/Resolved]
  - Anaphylactic shock [Recovered/Resolved]

NARRATIVE: CASE EVENT DATE: 20180117
